FAERS Safety Report 8404813-0 (Version None)
Quarter: 2012Q2

REPORT INFORMATION
  Report Type: 
  Country: None (occurrence: None)
  Receive Date: 20120601
  Receipt Date: 20120531
  Transmission Date: 20120825
  Serious: Yes (Other)
  Sender: FDA-Public Use
  Company Number: FR-MERCK-1203FRA00053

PATIENT
  Age: 21 Year
  Sex: Male

DRUGS (1)
  1. PROPECIA [Suspect]
     Indication: ALOPECIA
     Route: 048
     Dates: start: 19990128, end: 19991027

REACTIONS (4)
  - COGNITIVE DISORDER [None]
  - EJACULATION DISORDER [None]
  - ERECTILE DYSFUNCTION [None]
  - DEPRESSION [None]
